FAERS Safety Report 16442436 (Version 1)
Quarter: 2019Q2

REPORT INFORMATION
  Report Type: Spontaneous
  Country: GB (occurrence: GB)
  Receive Date: 20190617
  Receipt Date: 20190617
  Transmission Date: 20190711
  Serious: Yes (Other)
  Sender: FDA-Public Use
  Company Number: GB-PFIZER INC-2019253292

PATIENT
  Age: 71 Year
  Sex: Female
  Weight: 32 kg

DRUGS (2)
  1. DOXAZOSIN MESYLATE. [Concomitant]
     Active Substance: DOXAZOSIN MESYLATE
     Dosage: UNK
  2. AMLODIPINE BESILATE [Suspect]
     Active Substance: AMLODIPINE BESYLATE
     Dosage: 10 MG, UNK
     Route: 048
     Dates: start: 20160901, end: 20170412

REACTIONS (11)
  - Fluid retention [Unknown]
  - Pruritus [Unknown]
  - Erythema [Unknown]
  - Pollakiuria [Unknown]
  - Urticaria [Unknown]
  - Dry skin [Recovering/Resolving]
  - Urine odour abnormal [Unknown]
  - Burning sensation [Unknown]
  - Eye pruritus [Unknown]
  - Muscle spasms [Unknown]
  - Depression [Unknown]

NARRATIVE: CASE EVENT DATE: 20161001
